FAERS Safety Report 6686369-6 (Version None)
Quarter: 2010Q2

REPORT INFORMATION
  Report Type: 
  Country: None (occurrence: None)
  Receive Date: 20100414
  Receipt Date: 20100408
  Transmission Date: 20101027
  Serious: Yes (Death, Life-Threatening, Hospitalization)
  Sender: FDA-Public Use
  Company Number: 20097255

PATIENT
  Age: 14 Year
  Sex: Male

DRUGS (1)
  1. LIORESAL [Suspect]
     Indication: MUSCLE SPASTICITY
     Dosage: 974.9 MCG, DAILY, INTRATHECAL
     Route: 037

REACTIONS (7)
  - CHOLECYSTECTOMY [None]
  - DEVICE MALFUNCTION [None]
  - HYPOTENSION [None]
  - HYPOTONIA [None]
  - NAUSEA [None]
  - PYREXIA [None]
  - VOMITING [None]
